FAERS Safety Report 5890970-7 (Version None)
Quarter: 2008Q3

REPORT INFORMATION
  Report Type: 
  Country: None (occurrence: None)
  Receive Date: 20080922
  Receipt Date: 20080912
  Transmission Date: 20090109
  Serious: Yes (Hospitalization)
  Sender: FDA-Public Use
  Company Number: A0748492A

PATIENT
  Age: 52 Year
  Sex: Male
  Weight: 115.9 kg

DRUGS (3)
  1. AVANDIA [Suspect]
     Dosage: 2MG PER DAY
     Route: 048
     Dates: start: 20040101, end: 20060101
  2. METFORMIN HCL [Concomitant]
     Dosage: 500MG TWICE PER DAY
     Dates: start: 20040101
  3. ASPIRIN [Concomitant]

REACTIONS (2)
  - CARDIAC DISORDER [None]
  - MYOCARDIAL INFARCTION [None]
